FAERS Safety Report 7289646-3 (Version None)
Quarter: 2011Q1

REPORT INFORMATION
  Report Type: 
  Country: None (occurrence: None)
  Receive Date: 20110214
  Receipt Date: 20110202
  Transmission Date: 20110831
  Serious: Yes (Hospitalization)
  Sender: FDA-Public Use
  Company Number: US-BIOGENIDEC-2005BI006707

PATIENT
  Age: 65 Year
  Sex: Female
  Weight: 56 kg

DRUGS (7)
  1. AVONEX [Suspect]
     Route: 030
     Dates: start: 19990101, end: 20030801
  2. AVONEX [Suspect]
     Route: 030
     Dates: start: 20030801, end: 20090331
  3. MULTIVITAMIN [Concomitant]
     Indication: ROUTINE HEALTH MAINTENANCE
  4. PREMARIN [Concomitant]
     Indication: HORMONE THERAPY
  5. CALCIUM CARBONATE [Concomitant]
     Indication: ROUTINE HEALTH MAINTENANCE
  6. AVONEX [Suspect]
     Indication: MULTIPLE SCLEROSIS
     Route: 030
     Dates: start: 20101201
  7. ASPIRIN [Concomitant]
     Indication: ROUTINE HEALTH MAINTENANCE
     Dates: start: 20050201

REACTIONS (10)
  - ABNORMAL DREAMS [None]
  - RASH [None]
  - DEPRESSION [None]
  - INFLUENZA LIKE ILLNESS [None]
  - INCREASED APPETITE [None]
  - GRAND MAL CONVULSION [None]
  - WEIGHT INCREASED [None]
  - STRESS [None]
  - MULTIPLE SCLEROSIS [None]
  - ALOPECIA [None]
